FAERS Safety Report 13759279 (Version 1)
Quarter: 2017Q3

REPORT INFORMATION
  Report Type: Spontaneous
  Country: GB (occurrence: GB)
  Receive Date: 20170717
  Receipt Date: 20170717
  Transmission Date: 20171127
  Serious: Yes (Other)
  Sender: FDA-Public Use
  Company Number: GB-009507513-1705GBR002223

PATIENT
  Age: 72 Year
  Sex: Female

DRUGS (8)
  1. LANSOPRAZOLE. [Concomitant]
     Active Substance: LANSOPRAZOLE
     Indication: PRODUCT USED FOR UNKNOWN INDICATION
     Route: 065
  2. SINEMET PLUS 25 MG/100 MG TABLETS [Suspect]
     Active Substance: CARBIDOPA\LEVODOPA
     Dosage: LOW DOSE
     Route: 048
  3. LERCANIDIPINE [Concomitant]
     Active Substance: LERCANIDIPINE
     Indication: PRODUCT USED FOR UNKNOWN INDICATION
     Route: 065
  4. SINEMET PLUS 25 MG/100 MG TABLETS [Suspect]
     Active Substance: CARBIDOPA\LEVODOPA
     Indication: PARKINSON^S DISEASE
     Dosage: 25/100, UNK
     Route: 048
  5. PERINDOPRIL [Concomitant]
     Active Substance: PERINDOPRIL
     Indication: PRODUCT USED FOR UNKNOWN INDICATION
     Route: 065
  6. VITAMIN D [Concomitant]
     Active Substance: CHOLECALCIFEROL
     Indication: PRODUCT USED FOR UNKNOWN INDICATION
     Route: 065
  7. SINEMET PLUS 25 MG/100 MG TABLETS [Suspect]
     Active Substance: CARBIDOPA\LEVODOPA
     Dosage: DOSE INCREASED
     Route: 048
  8. SINEMET PLUS 25 MG/100 MG TABLETS [Suspect]
     Active Substance: CARBIDOPA\LEVODOPA
     Dosage: 25/100, HALF A TABLET, UNK
     Route: 048

REACTIONS (7)
  - Nocturia [Unknown]
  - Middle insomnia [Unknown]
  - Wrong technique in product usage process [Unknown]
  - Tremor [Unknown]
  - Off label use [Unknown]
  - Parkinsonism [Unknown]
  - Anxiety [Unknown]
